FAERS Safety Report 8831681 (Version 4)
Quarter: 2013Q3

REPORT INFORMATION
  Report Type: Report from Study
  Country: JP (occurrence: JP)
  Receive Date: 20121009
  Receipt Date: 20130712
  Transmission Date: 20140515
  Serious: Yes (Death, Hospitalization, Other)
  Sender: FDA-Public Use
  Company Number: JP-BAYER-2012-103100

PATIENT
  Age: 86 Year
  Sex: Male
  Weight: 61 kg

DRUGS (8)
  1. SORAFENIB (RAF KINASE INHIBITOR) [Suspect]
     Indication: HEPATOCELLULAR CARCINOMA
     Dosage: 200 MG, QD
     Route: 048
     Dates: start: 20111123, end: 20120825
  2. URSO [Concomitant]
     Dosage: DAILY DOSE 600 MG
     Route: 048
  3. LIVACT [Concomitant]
     Dosage: DAILY DOSE 3 DF
     Route: 048
  4. VESICARE [Concomitant]
     Dosage: DAILY DOSE 5 MG
     Route: 048
  5. EVIPROSTAT [Concomitant]
     Dosage: DAILY DOSE 2 DF
     Route: 048
  6. UREPEARL [Concomitant]
     Indication: PROPHYLAXIS
     Dosage: UNK
     Route: 061
  7. AMINOLEBAN EN [Concomitant]
     Indication: PROPHYLAXIS
     Dosage: DAILY DOSE 100 G
     Route: 048
     Dates: start: 20111228
  8. LACTULOSE [Concomitant]
     Indication: PROPHYLAXIS
     Dosage: DAILY DOSE 60 ML
     Route: 048
     Dates: start: 20111228

REACTIONS (13)
  - Hepatocellular carcinoma [Fatal]
  - Ascites [Not Recovered/Not Resolved]
  - Jaundice cholestatic [Recovering/Resolving]
  - Haematemesis [Fatal]
  - Rash [Recovering/Resolving]
  - Ammonia increased [Not Recovered/Not Resolved]
  - Constipation [Recovering/Resolving]
  - Amylase increased [Recovered/Resolved]
  - Lipase increased [Recovered/Resolved]
  - Hypothyroidism [Recovering/Resolving]
  - Decreased appetite [Not Recovered/Not Resolved]
  - Hepatic encephalopathy [Not Recovered/Not Resolved]
  - Hepatic failure [Not Recovered/Not Resolved]
